FAERS Safety Report 15358480 (Version 1)
Quarter: 2018Q3

REPORT INFORMATION
  Report Type: Spontaneous
  Country: US (occurrence: US)
  Receive Date: 20180906
  Receipt Date: 20180906
  Transmission Date: 20181010
  Serious: No
  Sender: FDA-Public Use
  Company Number: US-PERRIGO-17US025640

PATIENT
  Age: 35 Year
  Sex: Male
  Weight: 86.17 kg

DRUGS (2)
  1. TRIAMCINOLONE ACETONIDE. [Suspect]
     Active Substance: TRIAMCINOLONE ACETONIDE
     Dosage: 0.055 MG TO EACH NOSTRIL, TWICE WITHIN 2 HOURS
     Route: 045
     Dates: start: 20170802, end: 20170802
  2. TRIAMCINOLONE ACETONIDE. [Suspect]
     Active Substance: TRIAMCINOLONE ACETONIDE
     Indication: HYPERSENSITIVITY
     Dosage: 0.055 MG TO EACH NOSTRIL, QD
     Route: 045
     Dates: start: 20170801

REACTIONS (2)
  - Dizziness [Recovered/Resolved]
  - Extra dose administered [Recovered/Resolved]

NARRATIVE: CASE EVENT DATE: 20170802
